FAERS Safety Report 10365437 (Version 2)
Quarter: 2014Q3

REPORT INFORMATION
  Report Type: Spontaneous
  Country: US (occurrence: US)
  Receive Date: 20140806
  Receipt Date: 20140806
  Transmission Date: 20150326
  Serious: Yes (Other)
  Sender: FDA-Public Use
  Company Number: US-BAYER-2014-087896

PATIENT
  Age: 73 Year
  Sex: Female
  Weight: 70 kg

DRUGS (3)
  1. BAYER LOW DOSE [Suspect]
     Active Substance: ASPIRIN
     Indication: CEREBROVASCULAR ACCIDENT PROPHYLAXIS
     Dosage: 1 DF, UNK, 1 OR 2 A WEEK
     Route: 048
     Dates: start: 2013
  2. COQ10 [Concomitant]
     Active Substance: UBIDECARENONE
     Dosage: 1 DF, QD
     Dates: end: 201404
  3. BAYER GENUINE ASPIRIN [Suspect]
     Active Substance: ASPIRIN
     Dosage: 2 DF, PRN
     Route: 048

REACTIONS (7)
  - Drug ineffective [Unknown]
  - Haemorrhage subcutaneous [None]
  - Erythema [Unknown]
  - Intentional product misuse [Unknown]
  - Expired product administered [None]
  - Rash macular [Not Recovered/Not Resolved]
  - Incorrect dose administered [Unknown]

NARRATIVE: CASE EVENT DATE: 2013
